FAERS Safety Report 4912019-2 (Version None)
Quarter: 2006Q1

REPORT INFORMATION
  Report Type: 
  Country: None (occurrence: None)
  Receive Date: 20060213
  Receipt Date: 20060131
  Transmission Date: 20060701
  Serious: Yes (Death)
  Sender: FDA-Public Use
  Company Number: 2006011303

PATIENT
  Age: 62 Year
  Sex: Male
  Weight: 84 kg

DRUGS (9)
  1. SU-011,248 (SU-011-248) [Suspect]
     Indication: RENAL CELL CARCINOMA STAGE UNSPECIFIED
     Dosage: 50 MG (50 MG, 1 IN 1 D), ORAL
     Route: 048
     Dates: start: 20051128, end: 20060123
  2. IBUPROFEN [Concomitant]
  3. MORPHIN (MORPHINE SULFATE) [Concomitant]
  4. NEURONTIN [Concomitant]
  5. NOVALGIN (METAMIZOLE SODIUM) [Concomitant]
  6. ENOXAPARIN SODIUM [Concomitant]
  7. DUPHALAC [Concomitant]
  8. QUAMATEL (FAMOTIDINE) [Concomitant]
  9. DEXAMETHASONE [Concomitant]

REACTIONS (1)
  - DEATH [None]
